FAERS Safety Report 9679142 (Version 1)
Quarter: 2013Q4

REPORT INFORMATION
  Report Type: Spontaneous
  Country: US (occurrence: US)
  Receive Date: 20131108
  Receipt Date: 20131108
  Transmission Date: 20140711
  Serious: No
  Sender: FDA-Public Use
  Company Number: US-009507513-1310USA011261

PATIENT
  Age: 63 Year
  Sex: Male

DRUGS (14)
  1. VICTRELIS [Suspect]
     Indication: CHRONIC HEPATITIS C
     Dosage: 800 MG, TID
     Route: 048
     Dates: start: 20130918
  2. RIBAPAK [Suspect]
     Dosage: UNK
  3. PEGASYS [Suspect]
     Dosage: UNK
  4. LIDODERM [Concomitant]
  5. VITAMIN B (UNSPECIFIED) [Concomitant]
  6. HYDROCODONE [Concomitant]
  7. ASCORBIC ACID [Concomitant]
  8. VITAMIN D (UNSPECIFIED) [Concomitant]
  9. LICORICE [Concomitant]
  10. MILK THISTLE [Concomitant]
  11. OMEGA-3 MARINE TRIGLYCERIDES [Concomitant]
  12. LACTULOSE [Concomitant]
  13. OMEPRAZOLE [Concomitant]
  14. XIFAXAN [Concomitant]

REACTIONS (8)
  - Hypersomnia [Not Recovered/Not Resolved]
  - Memory impairment [Not Recovered/Not Resolved]
  - Nausea [Not Recovered/Not Resolved]
  - Platelet count decreased [Not Recovered/Not Resolved]
  - Rash generalised [Recovering/Resolving]
  - Asthenia [Not Recovered/Not Resolved]
  - Arthralgia [Not Recovered/Not Resolved]
  - Insomnia [Not Recovered/Not Resolved]
